FAERS Safety Report 20595805 (Version 6)
Quarter: 2023Q1

REPORT INFORMATION
  Report Type: Report from Study
  Country: US (occurrence: None)
  Receive Date: 20220315
  Receipt Date: 20230307
  Transmission Date: 20230418
  Serious: Yes (Death, Hospitalization, Other)
  Sender: FDA-Public Use
  Company Number: US-ROCHE-3007108

PATIENT
  Age: 68 Year
  Sex: Male
  Weight: 98.7 kg

DRUGS (1)
  1. ATEZOLIZUMAB [Suspect]
     Active Substance: ATEZOLIZUMAB
     Indication: Transitional cell carcinoma
     Dosage: ON 31/JAN/2022, LAST DOSE OF ATEZOLIZUMAB 1200 MG WAS ADMINISTERED.
     Route: 041
     Dates: start: 20211130, end: 20220131

REACTIONS (5)
  - Back pain [Recovered/Resolved]
  - Musculoskeletal disorder [Unknown]
  - Peripheral motor neuropathy [Unknown]
  - Flank pain [Unknown]
  - Disease progression [Fatal]

NARRATIVE: CASE EVENT DATE: 20211217
